FAERS Safety Report 11532971 (Version 1)
Quarter: 2015Q3

REPORT INFORMATION
  Report Type: Report from Study
  Country: CO (occurrence: CO)
  Receive Date: 20150921
  Receipt Date: 20150921
  Transmission Date: 20151125
  Serious: Yes (Hospitalization, Other)
  Sender: FDA-Public Use
  Company Number: CO-ABBVIE-15P-036-1466964-00

PATIENT
  Age: 1 Month
  Sex: Male
  Weight: 2.4 kg

DRUGS (2)
  1. FERROUS SULFATE [Concomitant]
     Active Substance: FERROUS SULFATE\FERROUS SULFATE, DRIED
     Indication: PRODUCT USED FOR UNKNOWN INDICATION
     Route: 065
  2. SYNAGIS [Suspect]
     Active Substance: PALIVIZUMAB
     Indication: PREMATURE BABY
     Route: 030
     Dates: start: 20150812

REACTIONS (2)
  - Retinopathy of prematurity [Recovered/Resolved]
  - Retinal laser coagulation [Recovered/Resolved]

NARRATIVE: CASE EVENT DATE: 20150909
